FAERS Safety Report 9350667 (Version 1)
Quarter: 2013Q2

REPORT INFORMATION
  Report Type: Spontaneous
  Country: IN (occurrence: IN)
  Receive Date: 20130617
  Receipt Date: 20130617
  Transmission Date: 20140414
  Serious: Yes (Hospitalization)
  Sender: FDA-Public Use
  Company Number: PHHY2013IN059778

PATIENT
  Age: 75 Year
  Sex: Female
  Weight: 60 kg

DRUGS (3)
  1. RIVASTIGMIN [Suspect]
     Indication: DEMENTIA ALZHEIMER^S TYPE
     Dosage: 4.6 MG, DAILY
     Route: 062
  2. RIVASTIGMIN [Suspect]
     Dosage: 9.5 MG, DAILY
     Route: 062
  3. RIVASTIGMIN [Suspect]
     Dosage: 9.5 MG, DAILY
     Route: 062

REACTIONS (7)
  - Abdominal distension [Unknown]
  - Dystonia [Unknown]
  - Muscle twitching [Unknown]
  - Restlessness [Unknown]
  - Dyskinesia [Unknown]
  - Vomiting [Unknown]
  - Diarrhoea [Unknown]
